FAERS Safety Report 7022063-X (Version None)
Quarter: 2010Q3

REPORT INFORMATION
  Report Type: 
  Country: None (occurrence: None)
  Receive Date: 20100930
  Receipt Date: 20100922
  Transmission Date: 20110219
  Serious: Yes (Hospitalization)
  Sender: FDA-Public Use
  Company Number: US-JNJFOC-20100707678

PATIENT
  Age: 37 Year
  Sex: Female
  Weight: 54.43 kg

DRUGS (4)
  1. LEVAQUIN [Suspect]
     Indication: PYELONEPHRITIS
     Route: 048
  2. LEVAQUIN [Suspect]
     Route: 048
  3. LEVAQUIN [Suspect]
     Indication: KIDNEY INFECTION
     Route: 048
  4. LEVAQUIN [Suspect]
     Route: 048

REACTIONS (13)
  - ARTHRALGIA [None]
  - DRUG INEFFECTIVE [None]
  - HYPOTONIA [None]
  - LIGAMENT PAIN [None]
  - MUSCLE TWITCHING [None]
  - MUSCULOSKELETAL CHEST PAIN [None]
  - MYALGIA [None]
  - PARAESTHESIA [None]
  - TENDON DISORDER [None]
  - TENDON PAIN [None]
  - TENDONITIS [None]
  - TREMOR [None]
  - URETHRAL PAIN [None]
